APPROVED DRUG PRODUCT: GENERLAC
Active Ingredient: LACTULOSE
Strength: 10GM/15ML
Dosage Form/Route: SOLUTION;ORAL, RECTAL
Application: A071842 | Product #001
Applicant: MORTON GROVE PHARMACEUTICALS INC
Approved: Sep 27, 1988 | RLD: No | RS: No | Type: DISCN